FAERS Safety Report 18375823 (Version 1)
Quarter: 2020Q4

REPORT INFORMATION
  Report Type: Spontaneous
  Country: US (occurrence: US)
  Receive Date: 20201013
  Receipt Date: 20201013
  Transmission Date: 20210114
  Serious: Yes (Death, Hospitalization, Other)
  Sender: FDA-Public Use
  Company Number: US-AMGEN-USASP2020163907

PATIENT

DRUGS (2)
  1. NEUPOGEN [Suspect]
     Active Substance: FILGRASTIM
     Indication: ANGINA PECTORIS
     Dosage: 5 MICROGRAM/KILOGRAM, QD (4-5 DAYS)
     Route: 058
  2. NEUPOGEN [Suspect]
     Active Substance: FILGRASTIM
     Indication: ANGINA PECTORIS

REACTIONS (7)
  - Death [Fatal]
  - Neoplasm malignant [Fatal]
  - Cerebrovascular accident [Unknown]
  - Cardiovascular disorder [Fatal]
  - Dyspnoea [Unknown]
  - Chest pain [Unknown]
  - Transient ischaemic attack [Unknown]
